FAERS Safety Report 8435370-0 (Version None)
Quarter: 2012Q2

REPORT INFORMATION
  Report Type: 
  Country: None (occurrence: None)
  Receive Date: 20120614
  Receipt Date: 20120611
  Transmission Date: 20120825
  Serious: Yes (Death, Hospitalization)
  Sender: FDA-Public Use
  Company Number: US-BAYER-2012-047456

PATIENT
  Age: 86 Year
  Sex: Male
  Weight: 50.794 kg

DRUGS (22)
  1. LISINOPRIL [Concomitant]
     Dosage: 10 MG, QD
     Route: 048
  2. IBUPROFEN [Concomitant]
     Dosage: 200 MG, UNK
     Route: 048
  3. SIMVASTATIN [Concomitant]
     Indication: BLOOD CHOLESTEROL INCREASED
     Dosage: 20 MG, QD
     Route: 048
  4. ATIVAN [Concomitant]
     Indication: ANXIETY
     Dosage: 0.5 MG, UNK
     Route: 048
  5. PLAVIX [Concomitant]
     Dosage: 75 MG, UNK
     Route: 048
  6. CALCIUM CARBONATE W/COLECALCIFEROL [Concomitant]
     Dosage: 1 U, UNK
     Route: 048
  7. LATANOPROST [Concomitant]
     Dosage: UNK
     Route: 047
  8. NEXIUM [Concomitant]
     Dosage: 40 MG, UNK
     Route: 048
  9. HYDROCODONE BITARTRATE + ACETAMINOPHEN [Concomitant]
     Indication: PAIN
     Route: 048
  10. ISOSORBIDE DINITRATE [Concomitant]
     Dosage: 30 MG, UNK
     Route: 048
  11. POTASSIUM CHLORIDE [Concomitant]
     Dosage: 10 MEQ, UNK
     Route: 048
  12. NEXAVAR [Suspect]
     Indication: HEPATIC NEOPLASM MALIGNANT
     Dosage: 400 MG, BID
     Route: 048
     Dates: start: 20101116
  13. MIRTAZAPINE [Concomitant]
     Indication: SLEEP DISORDER
     Dosage: 30 MG, UNK
     Route: 048
  14. MIRTAZAPINE [Concomitant]
     Indication: APPETITE DISORDER
  15. NITROSTAT [Concomitant]
     Indication: CHEST PAIN
     Dosage: 0.4 MG, UNK
     Route: 060
  16. LOTEMAX [Concomitant]
     Route: 047
  17. MULTI-VITAMIN [Concomitant]
     Dosage: 1 U, UNK
     Route: 048
  18. ASPIRIN [Concomitant]
     Dosage: 325 MG, QD
     Route: 048
  19. COREG [Concomitant]
     Indication: CARDIAC DISORDER
     Dosage: 6.25 MG, UNK
     Route: 048
  20. LASIX [Concomitant]
     Dosage: 40 MG, QD
     Route: 048
  21. TYLENOL PM, EXTRA STRENGTH [DIPHENHYDRAMINE,PARACETAMOL] [Concomitant]
  22. ZOFRAN [Concomitant]
     Indication: NAUSEA
     Dosage: 8 MG, UNK

REACTIONS (1)
  - MYOCARDIAL INFARCTION [None]
